FAERS Safety Report 4846678-X (Version None)
Quarter: 2005Q4

REPORT INFORMATION
  Report Type: 
  Country: None (occurrence: None)
  Receive Date: 20051202
  Receipt Date: 20051118
  Transmission Date: 20060501
  Serious: Yes (Death, Hospitalization)
  Sender: FDA-Public Use
  Company Number: 12180

PATIENT
  Age: 59 Year
  Sex: Male
  Weight: 54 kg

DRUGS (8)
  1. DOPAMINE [Suspect]
     Indication: SHOCK
     Dates: start: 20040601
  2. DOPAMINE [Suspect]
     Indication: SHOCK
  3. MORPHINE [Concomitant]
  4. FUROSEMIDE [Concomitant]
  5. DORMICUM [Concomitant]
  6. STEROFUNDIN [Concomitant]
  7. SOLU-MEDROL [Concomitant]
  8. HEPARIN SODIUM [Concomitant]

REACTIONS (5)
  - ACUTE RESPIRATORY DISTRESS SYNDROME [None]
  - CARDIAC DISORDER [None]
  - ELECTROCARDIOGRAM ST SEGMENT ELEVATION [None]
  - HYPONATRAEMIA [None]
  - VASOCONSTRICTION [None]
